FAERS Safety Report 24259138 (Version 1)
Quarter: 2024Q3

REPORT INFORMATION
  Report Type: Spontaneous
  Country: DE (occurrence: DE)
  Receive Date: 20240828
  Receipt Date: 20240828
  Transmission Date: 20241016
  Serious: Yes (Hospitalization, Other)
  Sender: ACCORD
  Company Number: DE-EMA-DD-20240806-7482645-115801

PATIENT
  Age: 42 Year
  Sex: Male

DRUGS (8)
  1. BUSULFAN [Suspect]
     Active Substance: BUSULFAN
     Indication: Bone marrow conditioning regimen
  2. METHOTREXATE [Suspect]
     Active Substance: METHOTREXATE
     Indication: Immunosuppression
     Dosage: 15 MG/M2 ON DAY +1
  3. FLUDARABINE [Suspect]
     Active Substance: FLUDARABINE PHOSPHATE
     Indication: Bone marrow conditioning regimen
     Dosage: 30 MG/M2, QD (-8 TO -3 DAYS) OVER 30 MIN (TOTAL 180 MG/M2).
  4. THYMOCYTE IMMUNE GLOBULIN NOS [Suspect]
     Active Substance: THYMOCYTE IMMUNE GLOBULIN NOS
     Indication: Immunosuppression
     Dosage: 30?MG/KG BODYWEIGHT/DAY OVER 6-12?H
  5. CYCLOSPORINE [Suspect]
     Active Substance: CYCLOSPORINE
     Indication: Immunosuppression
  6. METHOTREXATE [Suspect]
     Active Substance: METHOTREXATE
     Indication: Immunosuppression
     Dosage: 10 MG/KG, BODY WEIGHT ON DAY +3 AND +6
  7. BUSULFAN [Suspect]
     Active Substance: BUSULFAN
     Indication: Leukoencephalopathy
     Dosage: 3.2 MG/KG, ONCE DAILY (-7 DAY AND -6 DAY)
  8. BUSULFAN [Suspect]
     Active Substance: BUSULFAN
     Indication: Leukoencephalopathy
     Dosage: 1.6 MG/KG, ONCE DAILY (-5 DAY)

REACTIONS (7)
  - Nausea [Recovered/Resolved]
  - Fracture [Unknown]
  - Disease progression [Unknown]
  - Fall [Unknown]
  - Gait disturbance [Unknown]
  - Acute kidney injury [Recovered/Resolved]
  - Vomiting [Recovered/Resolved]
